FAERS Safety Report 4621911-8 (Version None)
Quarter: 2005Q1

REPORT INFORMATION
  Report Type: 
  Country: None (occurrence: None)
  Receive Date: 20050329
  Receipt Date: 20050318
  Transmission Date: 20050727
  Serious: Yes (Other)
  Sender: FDA-Public Use
  Company Number: FR-GLAXOSMITHKLINE-B0375824A

PATIENT
  Age: 28 Year
  Sex: Female

DRUGS (2)
  1. LAMICTAL [Suspect]
     Indication: EPILEPSY
     Dosage: 100MG TWICE PER DAY
     Route: 048
  2. DEPAKENE [Suspect]
     Indication: EPILEPSY
     Route: 048

REACTIONS (2)
  - ABORTION SPONTANEOUS [None]
  - EPILEPSY [None]
